FAERS Safety Report 10488064 (Version 1)
Quarter: 2014Q4

REPORT INFORMATION
  Report Type: Spontaneous
  Country: US (occurrence: US)
  Receive Date: 20141001
  Receipt Date: 20141001
  Transmission Date: 20150528
  Serious: No
  Sender: FDA-Public Use
  Company Number: US-009507513-1409USA014345

PATIENT
  Sex: Female

DRUGS (1)
  1. EMEND [Suspect]
     Active Substance: APREPITANT
     Indication: CHEMOTHERAPY

REACTIONS (3)
  - Eating disorder [Unknown]
  - Product use issue [Unknown]
  - Drug ineffective [Unknown]
